FAERS Safety Report 4605087-9 (Version None)
Quarter: 2005Q2

REPORT INFORMATION
  Report Type: 
  Country: None (occurrence: None)
  Receive Date: 20050217
  Receipt Date: 20041130
  Transmission Date: 20051028
  Serious: No
  Sender: FDA-Public Use
  Company Number: S04-USA-07666-01

PATIENT
  Age: 81 Year
  Sex: Male

DRUGS (7)
  1. NAMENDA [Suspect]
     Indication: AMNESIA
     Dosage: 10 MG BID; PO
     Route: 048
     Dates: start: 20041001, end: 20041001
  2. NAMENDA [Suspect]
     Indication: AMNESIA
     Dosage: 5 MG QD; PO
     Route: 048
     Dates: start: 20041001, end: 20041001
  3. NAMENDA [Suspect]
     Indication: AMNESIA
     Dosage: 5 MG BID; PO
     Route: 048
     Dates: start: 20041001, end: 20041001
  4. NAMENDA [Suspect]
     Indication: AMNESIA
     Dosage: 15 MG QD; PO
     Route: 048
     Dates: start: 20041001, end: 20041001
  5. NAMENDA [Suspect]
     Indication: AMNESIA
     Dosage: 5 MG QD; PO
     Route: 048
     Dates: start: 20041101, end: 20041101
  6. NAMENDA [Suspect]
     Indication: AMNESIA
     Dosage: 5 MG BID; PO
     Route: 048
     Dates: start: 20041101, end: 20041201
  7. NAMENDA [Suspect]
     Indication: AMNESIA
     Dosage: 15 MG QD; PO
     Route: 048
     Dates: start: 20041201

REACTIONS (2)
  - ABDOMINAL PAIN UPPER [None]
  - VERTIGO [None]
